FAERS Safety Report 5441174-3 (Version None)
Quarter: 2007Q3

REPORT INFORMATION
  Report Type: 
  Country: None (occurrence: None)
  Receive Date: 20070901
  Receipt Date: 20070820
  Transmission Date: 20080115
  Serious: Yes (Hospitalization, Other)
  Sender: FDA-Public Use
  Company Number: PFIZER INC-2007069336

PATIENT
  Sex: Female
  Weight: 55.454 kg

DRUGS (3)
  1. NEURONTIN [Suspect]
     Indication: NEUROPATHY
     Dates: start: 20010701, end: 20050101
  2. MORPHINE [Concomitant]
  3. METHADONE HCL [Concomitant]

REACTIONS (15)
  - ACTIVITIES OF DAILY LIVING IMPAIRED [None]
  - AMNESIA [None]
  - COGNITIVE DISORDER [None]
  - CORNEAL REFLEX DECREASED [None]
  - DIARRHOEA [None]
  - EXPRESSIVE LANGUAGE DISORDER [None]
  - FEELING ABNORMAL [None]
  - GAIT DISTURBANCE [None]
  - HALLUCINATION [None]
  - HEART RATE IRREGULAR [None]
  - NARCOLEPSY [None]
  - NEUROPATHY [None]
  - THYROID DISORDER [None]
  - VOMITING [None]
  - WEIGHT INCREASED [None]
